FAERS Safety Report 9556393 (Version 1)
Quarter: 2013Q3

REPORT INFORMATION
  Report Type: Spontaneous
  Country: ZA (occurrence: ZA)
  Receive Date: 20130926
  Receipt Date: 20130926
  Transmission Date: 20140515
  Serious: Yes (Other)
  Sender: FDA-Public Use
  Company Number: ZA-UCBSA-098716

PATIENT
  Age: 23 Year
  Sex: Male

DRUGS (3)
  1. KEPPRA [Suspect]
     Indication: MYOCLONIC EPILEPSY
     Dates: start: 201306
  2. KEPPRA [Interacting]
     Indication: PETIT MAL EPILEPSY
     Dates: start: 201306
  3. FIXIME [Interacting]
     Dates: start: 201308

REACTIONS (5)
  - Convulsion [Unknown]
  - Dyskinesia [Unknown]
  - Swelling face [Unknown]
  - Flushing [Unknown]
  - Drug interaction [Unknown]
